FAERS Safety Report 6917960-7 (Version None)
Quarter: 2010Q3

REPORT INFORMATION
  Report Type: 
  Country: None (occurrence: None)
  Receive Date: 20100810
  Receipt Date: 20090810
  Transmission Date: 20110219
  Serious: No
  Sender: FDA-Public Use
  Company Number: US-PFIZER INC-2009233487

PATIENT

DRUGS (2)
  1. TOVIAZ [Suspect]
     Dosage: 4 MG, UNK
  2. DARIFENACIN HYDROBROMIDE [Suspect]

REACTIONS (1)
  - DRUG HYPERSENSITIVITY [None]
